FAERS Safety Report 5787257-X (Version None)
Quarter: 2008Q2

REPORT INFORMATION
  Report Type: 
  Country: None (occurrence: None)
  Receive Date: 20080623
  Receipt Date: 20080623
  Transmission Date: 20081010
  Serious: Yes (Disabling)
  Sender: FDA-Public Use
  Company Number: None

PATIENT
  Age: 64 Year
  Sex: Male
  Weight: 68.0396 kg

DRUGS (1)
  1. RATIO-EMTEC 30 MG GENERIC [Suspect]
     Indication: PROCEDURAL PAIN
     Dosage: 1 TO 2 TABLETS EVERY FOUR HOURS PO
     Route: 048
     Dates: start: 20080528, end: 20080530

REACTIONS (2)
  - CONSTIPATION [None]
  - DYSURIA [None]
